FAERS Safety Report 15600914 (Version 1)
Quarter: 2018Q4

REPORT INFORMATION
  Report Type: Spontaneous
  Country: US (occurrence: US)
  Receive Date: 20181108
  Receipt Date: 20181108
  Transmission Date: 20190205
  Serious: Yes (Death)
  Sender: FDA-Public Use
  Company Number: None

PATIENT
  Age: 22 Year
  Sex: Female

DRUGS (5)
  1. PULMOZYME [Suspect]
     Active Substance: DORNASE ALFA
     Indication: CYSTIC FIBROSIS LUNG
     Dosage: ?          OTHER ROUTE:NEBULIZER?
     Dates: start: 20150825
  2. TOBI [Concomitant]
     Active Substance: TOBRAMYCIN
  3. HUMALOG [Concomitant]
     Active Substance: INSULIN LISPRO
  4. CREON [Concomitant]
     Active Substance: PANCRELIPASE AMYLASE\PANCRELIPASE LIPASE\PANCRELIPASE PROTEASE
  5. MINOCYCLINE [Concomitant]
     Active Substance: MINOCYCLINE\MINOCYCLINE HYDROCHLORIDE

REACTIONS (1)
  - Death [None]

NARRATIVE: CASE EVENT DATE: 20181107
